FAERS Safety Report 10790427 (Version 2)
Quarter: 2015Q1

REPORT INFORMATION
  Report Type: Report from Study
  Country: US (occurrence: US)
  Receive Date: 20150212
  Receipt Date: 20150218
  Transmission Date: 20150721
  Serious: Yes (Other)
  Sender: FDA-Public Use
  Company Number: US-BAYER-US-2007-020905

PATIENT
  Age: 34 Year
  Sex: Female

DRUGS (4)
  1. BETASERON [Suspect]
     Active Substance: INTERFERON BETA-1B
     Indication: RELAPSING-REMITTING MULTIPLE SCLEROSIS
     Dosage: 4 MIU, EVERY 3 DAYS
     Route: 058
     Dates: start: 19940830
  2. BETASERON [Suspect]
     Active Substance: INTERFERON BETA-1B
     Indication: RELAPSING-REMITTING MULTIPLE SCLEROSIS
     Dosage: 0.125 MG, EVERY THIRD DAY
     Route: 058
  3. BETASERON [Suspect]
     Active Substance: INTERFERON BETA-1B
     Indication: RELAPSING-REMITTING MULTIPLE SCLEROSIS
     Dosage: 0.125 MG, EVERY 4-5 DAYS
     Route: 058
  4. BETASERON [Suspect]
     Active Substance: INTERFERON BETA-1B
     Indication: RELAPSING-REMITTING MULTIPLE SCLEROSIS
     Dosage: 0.125 MG, EVERY THIRD DAY
     Route: 058

REACTIONS (11)
  - Influenza like illness [Not Recovered/Not Resolved]
  - Myalgia [Not Recovered/Not Resolved]
  - Injection site necrosis [None]
  - Injection site rash [Not Recovered/Not Resolved]
  - Impaired healing [None]
  - Injection site necrosis [Recovered/Resolved]
  - Injection site pain [Not Recovered/Not Resolved]
  - Off label use [None]
  - Scar [Recovered/Resolved]
  - Injection site bruising [Not Recovered/Not Resolved]
  - Inappropriate schedule of drug administration [Recovered/Resolved]

NARRATIVE: CASE EVENT DATE: 1994
